FAERS Safety Report 15806427 (Version 2)
Quarter: 2020Q1

REPORT INFORMATION
  Report Type: Spontaneous
  Country: US (occurrence: US)
  Receive Date: 20190110
  Receipt Date: 20200309
  Transmission Date: 20200409
  Serious: Yes (Hospitalization, Other)
  Sender: FDA-Public Use
  Company Number: US-TORRENT-00007421

PATIENT
  Age: 71 Year
  Sex: Female
  Weight: 63 kg

DRUGS (5)
  1. LOSARTAN. [Suspect]
     Active Substance: LOSARTAN
     Indication: HYPERTENSION
     Dosage: STARTED TAKING 25MG AND THEN 50 MG AND 100 MG PER DAY OVER LAST YEAR
     Route: 048
     Dates: start: 2017
  2. LOSARTAN. [Suspect]
     Active Substance: LOSARTAN
     Indication: HYPERTENSION
     Dosage: STARTED TAKING 25MG AND THEN 50 MG AND 100 MG PER DAY OVER LAST YEAR
     Route: 048
     Dates: start: 2016
  3. GLYPEZIDE [Concomitant]
     Indication: DIABETES MELLITUS
     Dosage: 1 MG 2 PILLS IN THE MORNING AND TWO IN THE NIGHT
  4. METFORMIN [Concomitant]
     Active Substance: METFORMIN HYDROCHLORIDE
     Indication: DIABETES MELLITUS
     Route: 048
  5. LOSARTAN. [Suspect]
     Active Substance: LOSARTAN
     Indication: HYPERTENSION
     Dosage: STARTED TAKING 25MG AND THEN 50 MG AND 100 MG PER DAY OVER LAST YEAR
     Route: 048
     Dates: start: 2016

REACTIONS (4)
  - Hysterectomy [Unknown]
  - Uterine cancer [Unknown]
  - Malaise [Unknown]
  - Pancreatic carcinoma [Unknown]

NARRATIVE: CASE EVENT DATE: 2018
